FAERS Safety Report 15851157 (Version 2)
Quarter: 2019Q1

REPORT INFORMATION
  Report Type: Spontaneous
  Country: DE (occurrence: DE)
  Receive Date: 20190122
  Receipt Date: 20190131
  Transmission Date: 20190417
  Serious: Yes (Other)
  Sender: FDA-Public Use
  Company Number: DE-AMGEN-DEUSP2019007868

PATIENT
  Sex: Female
  Weight: 68 kg

DRUGS (2)
  1. XGEVA [Suspect]
     Active Substance: DENOSUMAB
     Indication: BONE GIANT CELL TUMOUR
     Dosage: 120 MG, QMO
     Route: 065
  2. VITAMIN D [Concomitant]
     Active Substance: CHOLECALCIFEROL
     Dosage: 20000 IE POSSIBLY 1/WEEK
     Dates: start: 2016, end: 201901

REACTIONS (1)
  - Stress fracture [Recovering/Resolving]

NARRATIVE: CASE EVENT DATE: 2017
